FAERS Safety Report 9469292 (Version 1)
Quarter: 2013Q3

REPORT INFORMATION
  Report Type: Spontaneous
  Country: US (occurrence: None)
  Receive Date: 20130815
  Receipt Date: 20130815
  Transmission Date: 20140515
  Serious: Yes (Disabling, Other)
  Sender: FDA-Public Use
  Company Number: 1308-1024

PATIENT
  Age: 83 Year
  Sex: Female

DRUGS (1)
  1. EYLEA [Suspect]
     Dosage: INTRAVITREAL

REACTIONS (3)
  - Iris haemorrhage [None]
  - Abasia [None]
  - Eye movement disorder [None]
